FAERS Safety Report 9695971 (Version 2)
Quarter: 2013Q4

REPORT INFORMATION
  Report Type: Spontaneous
  Country: BR (occurrence: BR)
  Receive Date: 20131119
  Receipt Date: 20131204
  Transmission Date: 20140711
  Serious: Yes (Other)
  Sender: FDA-Public Use
  Company Number: BR-BRISTOL-MYERS SQUIBB COMPANY-19829829

PATIENT
  Age: 84 Year
  Sex: Female

DRUGS (2)
  1. GLIFAGE XR [Suspect]
     Indication: DIABETES MELLITUS
     Dosage: HALF TABLET ONCE IN A DAY
     Dates: start: 20130923
  2. NATRILIX [Concomitant]
     Indication: BLOOD PRESSURE

REACTIONS (1)
  - Haematochezia [Recovered/Resolved]
